FAERS Safety Report 5443968-7 (Version None)
Quarter: 2007Q3

REPORT INFORMATION
  Report Type: 
  Country: None (occurrence: None)
  Receive Date: 20070905
  Receipt Date: 20070831
  Transmission Date: 20080115
  Serious: Yes (Death)
  Sender: FDA-Public Use
  Company Number: US-PFIZER INC-2007072373

PATIENT
  Sex: Male
  Weight: 83 kg

DRUGS (34)
  1. ZYVOX [Suspect]
     Indication: PNEUMONIA STAPHYLOCOCCAL
     Route: 042
     Dates: end: 20070515
  2. ACETAMINOPHEN [Concomitant]
     Route: 048
  3. ASPIRIN [Concomitant]
     Route: 048
  4. ALLOPURINOL [Concomitant]
     Route: 048
  5. AMIODARONE [Concomitant]
     Route: 048
  6. DULCOLAX [Concomitant]
     Route: 054
     Dates: start: 20070512
  7. CARVEDILOL [Concomitant]
     Route: 048
     Dates: start: 20070509
  8. CEFPODOXIME PROXETIL [Concomitant]
     Route: 048
     Dates: start: 20070521
  9. CLONAZEPAM [Concomitant]
     Route: 048
  10. CLOPIDOGREL [Concomitant]
     Route: 048
  11. DOCUSATE SODIUM [Concomitant]
     Route: 048
  12. FLUOXETINE HYDROCHLORIDE [Concomitant]
     Route: 048
  13. FUROSEMIDE [Concomitant]
     Route: 048
  14. HEPARIN [Concomitant]
     Route: 042
     Dates: start: 20070509
  15. INSULIN [Concomitant]
     Route: 058
     Dates: start: 20070509
  16. NPH INSULIN [Concomitant]
     Route: 058
  17. LACTULOSE [Concomitant]
     Dosage: TEXT:15-30 ML-FREQ:DAILY
     Route: 048
     Dates: start: 20070505
  18. LEVOSALBUTAMOL [Concomitant]
     Route: 055
     Dates: start: 20070511
  19. LEVOSALBUTAMOL [Concomitant]
     Route: 055
     Dates: start: 20070511
  20. SYNTHROID [Concomitant]
     Route: 048
  21. MAALOX FAST BLOCKER [Concomitant]
     Route: 048
  22. MAGNESIUM OXIDE [Concomitant]
     Route: 048
  23. MAGNESIUM SULFATE [Concomitant]
     Route: 042
     Dates: start: 20070521
  24. MONTELUKAST SODIUM [Concomitant]
     Route: 048
     Dates: start: 20070505
  25. MORPHINE [Concomitant]
     Route: 048
  26. NITROGLYCERIN [Concomitant]
     Dosage: TEXT:1/150 1 TAB-FREQ:Q 5MIN X 3DOSES
     Route: 060
  27. OMEPRAZOLE [Concomitant]
     Route: 048
  28. PREDNISONE [Concomitant]
     Route: 048
  29. COMPAZINE [Concomitant]
     Dosage: TEXT:5-10MG-FREQ:Q6H
     Route: 042
     Dates: start: 20070521
  30. ALDACTONE [Concomitant]
     Route: 048
     Dates: start: 20070516
  31. ALDACTONE [Concomitant]
  32. TIOTROPIUM [Concomitant]
     Route: 055
     Dates: start: 20070511
  33. WARFARIN SODIUM [Concomitant]
     Route: 048
     Dates: start: 20070519
  34. INSULIN [Concomitant]
     Route: 058
     Dates: start: 20070509

REACTIONS (1)
  - DEATH [None]
